FAERS Safety Report 10159630 (Version 1)
Quarter: 2014Q2

REPORT INFORMATION
  Report Type: Spontaneous
  Country: US (occurrence: US)
  Receive Date: 20140508
  Receipt Date: 20140508
  Transmission Date: 20141212
  Serious: No
  Sender: FDA-Public Use
  Company Number: US-GLAXOSMITHKLINE-A1017870A

PATIENT
  Sex: Female

DRUGS (2)
  1. TYKERB [Suspect]
     Indication: NEOPLASM MALIGNANT
     Dosage: 4TAB PER DAY
     Route: 048
  2. UNKNOWN [Concomitant]

REACTIONS (1)
  - Chest pain [Unknown]
